FAERS Safety Report 14794603 (Version 2)
Quarter: 2018Q2

REPORT INFORMATION
  Report Type: Report from Study
  Country: US (occurrence: US)
  Receive Date: 20180423
  Receipt Date: 20180427
  Transmission Date: 20180711
  Serious: Yes (Other)
  Sender: FDA-Public Use
  Company Number: US-JAZZ-2018-US-001225

PATIENT
  Age: 36 Year
  Sex: Female

DRUGS (14)
  1. VITAMIN D3 [Concomitant]
     Active Substance: CHOLECALCIFEROL
  2. XYREM [Suspect]
     Active Substance: SODIUM OXYBATE
     Indication: NARCOLEPSY
     Dosage: 4.5 G, BID
     Route: 048
     Dates: start: 201510
  3. CALCIUM + VITAMIN D [Concomitant]
     Active Substance: CALCIUM\VITAMIN D
  4. VITAMIN D [Concomitant]
     Active Substance: CHOLECALCIFEROL
  5. ARMODAFINIL. [Concomitant]
     Active Substance: ARMODAFINIL
  6. GABAPENTIN. [Concomitant]
     Active Substance: GABAPENTIN
  7. ZOLOFT [Concomitant]
     Active Substance: SERTRALINE HYDROCHLORIDE
  8. CYCLOBENZAPRINE. [Concomitant]
     Active Substance: CYCLOBENZAPRINE
  9. METHYLPHENIDATE. [Concomitant]
     Active Substance: METHYLPHENIDATE
  10. NUVIGIL [Concomitant]
     Active Substance: ARMODAFINIL
  11. XYREM [Suspect]
     Active Substance: SODIUM OXYBATE
     Indication: CATAPLEXY
  12. VISTARIL [Concomitant]
     Active Substance: HYDROXYZINE PAMOATE
  13. EFFEXOR [Concomitant]
     Active Substance: VENLAFAXINE HYDROCHLORIDE
  14. PRENATAL FORMULA [Concomitant]

REACTIONS (4)
  - Lower respiratory tract infection [Unknown]
  - Nasopharyngitis [Not Recovered/Not Resolved]
  - Pneumonia [Recovered/Resolved]
  - Anxiety [Not Recovered/Not Resolved]

NARRATIVE: CASE EVENT DATE: 201803
